FAERS Safety Report 6025517-8 (Version None)
Quarter: 2008Q4

REPORT INFORMATION
  Report Type: 
  Country: None (occurrence: None)
  Receive Date: 20081222
  Receipt Date: 20081211
  Transmission Date: 20090506
  Serious: Yes (Hospitalization)
  Sender: FDA-Public Use
  Company Number: GB-IGSA-IG534

PATIENT
  Age: 72 Year
  Sex: Female
  Weight: 34.6095 kg

DRUGS (3)
  1. FLEBOGAMMA [Suspect]
     Indication: HYPOGAMMAGLOBULINAEMIA
     Dosage: 20 G (0.26G/KG) IV  FIRST DOSE
     Route: 042
     Dates: start: 20081101
  2. ANTIBIOTICS IV (MEROPENEM, STANDARD DOSE) [Concomitant]
  3. STEROIDS O (PREDNISOLOEN, 40 MG) [Concomitant]

REACTIONS (11)
  - ADMINISTRATION SITE REACTION [None]
  - BRONCHIECTASIS [None]
  - CONFUSIONAL STATE [None]
  - GENERAL PHYSICAL HEALTH DETERIORATION [None]
  - INFUSION RELATED REACTION [None]
  - MEDIASTINAL DISORDER [None]
  - PNEUMONITIS [None]
  - PRODUCT QUALITY ISSUE [None]
  - RESPIRATORY DISORDER [None]
  - STENOTROPHOMONAS INFECTION [None]
  - TRANSMISSION OF AN INFECTIOUS AGENT VIA A MEDICINAL PRODUCT [None]
